FAERS Safety Report 16483598 (Version 1)
Quarter: 2019Q2

REPORT INFORMATION
  Report Type: Spontaneous
  Country: US (occurrence: US)
  Receive Date: 20190516
  Receipt Date: 20190516
  Transmission Date: 20190711
  Serious: Yes (Hospitalization)
  Sender: FDA-Public Use
  Company Number: None

PATIENT
  Age: 68 Year
  Sex: Male

DRUGS (1)
  1. TEMOZOLOMIDE 5MG CAP [Suspect]
     Active Substance: TEMOZOLOMIDE
     Dosage: ?          OTHER
     Route: 048
     Dates: start: 20190216

REACTIONS (2)
  - Brain oedema [None]
  - Localised infection [None]

NARRATIVE: CASE EVENT DATE: 20190516
